FAERS Safety Report 17649265 (Version 1)
Quarter: 2020Q2

REPORT INFORMATION
  Report Type: Spontaneous
  Country: FR (occurrence: FR)
  Receive Date: 20200409
  Receipt Date: 20200409
  Transmission Date: 20200713
  Serious: Yes (Hospitalization)
  Sender: FDA-Public Use
  Company Number: FR-TEVA-2020-FR-1220997

PATIENT
  Age: 83 Year
  Sex: Female

DRUGS (8)
  1. BILASKA 20 MG, COMPRIM? [Suspect]
     Active Substance: BILASTINE
     Indication: PRODUCT USED FOR UNKNOWN INDICATION
     Dosage: 20 MG
     Route: 048
  2. MODOPAR 62,5 (50 MG/12,5 MG), G?LULE [Concomitant]
     Active Substance: BENSERAZIDE HYDROCHLORIDE\LEVODOPA
     Dosage: 3 DOSAGE FORM
     Route: 048
  3. BISOCE 5 MG, COMPRIM? PELLICUL? S?CABLE [Concomitant]
     Active Substance: BISOPROLOL
     Dosage: 5 MG
     Route: 048
  4. ALLOPURINOL. [Suspect]
     Active Substance: ALLOPURINOL
     Indication: GOUT
     Dosage: 200 MG
     Route: 048
  5. COLCHIMAX, COMPRIM? PELLICUL? [Suspect]
     Active Substance: COLCHICINE\OPIUM\TIEMONIUM METHYLSULFATE
     Indication: PRODUCT USED FOR UNKNOWN INDICATION
     Dosage: 0.5 DOSAGE FORM
     Route: 048
  6. EUPRESSYL 30 MG, G?LULE [Concomitant]
     Active Substance: URAPIDIL
     Dosage: 60 MG
     Route: 048
  7. RESITUNE 75 MG, COMPRIM? GASTRO-R?SISTANT [Concomitant]
     Active Substance: ASPIRIN
     Dosage: 75 MG
     Route: 048
  8. ATARAX [Concomitant]
     Active Substance: HYDROXYZINE HYDROCHLORIDE
     Dosage: 25 MG
     Route: 048

REACTIONS (2)
  - Proctitis [Recovering/Resolving]
  - Diarrhoea [Recovering/Resolving]

NARRATIVE: CASE EVENT DATE: 201911
